FAERS Safety Report 18594886 (Version 1)
Quarter: 2020Q4

REPORT INFORMATION
  Report Type: Spontaneous
  Country: ES (occurrence: ES)
  Receive Date: 20201209
  Receipt Date: 20201209
  Transmission Date: 20210114
  Serious: Yes (Hospitalization)
  Sender: FDA-Public Use
  Company Number: ES-PFIZER INC-2020482987

PATIENT
  Age: 95 Year
  Sex: Male

DRUGS (2)
  1. ORFIDAL [Suspect]
     Active Substance: LORAZEPAM
     Dosage: 1 MG, 1X/DAY (EVERY 24H)
     Route: 048
     Dates: start: 20100617
  2. SOMNOVIT [Suspect]
     Active Substance: LOPRAZOLAM MESILATE
     Dosage: 1 MG, 1X/DAY (EVERY 24H)
     Route: 048
     Dates: start: 20110111, end: 20201112

REACTIONS (1)
  - Fall [Recovered/Resolved]

NARRATIVE: CASE EVENT DATE: 20201111
